APPROVED DRUG PRODUCT: TAXOL
Active Ingredient: PACLITAXEL
Strength: 6MG/ML **Federal Register determination that product was not discontinued or withdrawn for safety or effectiveness reasons**
Dosage Form/Route: INJECTABLE;INJECTION
Application: N020262 | Product #001
Applicant: HQ SPECIALTY PHARMA CORP
Approved: Dec 29, 1992 | RLD: Yes | RS: No | Type: DISCN